FAERS Safety Report 15016478 (Version 20)
Quarter: 2021Q3

REPORT INFORMATION
  Report Type: Spontaneous
  Country: US (occurrence: US)
  Receive Date: 20180615
  Receipt Date: 20210701
  Transmission Date: 20211014
  Serious: Yes (Hospitalization, Other)
  Sender: FDA-Public Use
  Company Number: US-PFIZER INC-2018243877

PATIENT
  Age: 81 Year
  Sex: Male
  Weight: 59 kg

DRUGS (5)
  1. LYRICA [Suspect]
     Active Substance: PREGABALIN
     Indication: RESTLESS LEGS SYNDROME
     Dosage: 100 MG (TAKE 2 CAPSULES BY MOUTH) 3 TIMES DAILY
     Route: 048
     Dates: start: 20181105
  2. LYRICA [Suspect]
     Active Substance: PREGABALIN
     Indication: NEUROPATHY PERIPHERAL
     Dosage: 100 MG, THREE TIMES DAILY
     Route: 048
  3. LYRICA [Suspect]
     Active Substance: PREGABALIN
     Indication: MUSCLE DISCOMFORT
     Dosage: 400 MG, DAILY (100 MG QAM; 100 MG QPM; 200 MG QHS (EVERY NIGHT AT BEDTIME))
  4. LYRICA [Suspect]
     Active Substance: PREGABALIN
     Dosage: 100 MG, FOUR TIMES DAILY
  5. LYRICA [Suspect]
     Active Substance: PREGABALIN
     Indication: PAIN
     Dosage: 50 MG THRICE A DAY (1 CAPSULE 3 TIMES A DAY)
     Route: 048

REACTIONS (6)
  - Body height decreased [Unknown]
  - Renal cancer [Unknown]
  - Fall [Unknown]
  - Illness [Unknown]
  - Hypoacusis [Not Recovered/Not Resolved]
  - Hip fracture [Unknown]
